FAERS Safety Report 4926643-4 (Version None)
Quarter: 2006Q1

REPORT INFORMATION
  Report Type: 
  Country: None (occurrence: None)
  Receive Date: 20060228
  Receipt Date: 20050516
  Transmission Date: 20060701
  Serious: No
  Sender: FDA-Public Use
  Company Number: US-GLAXOSMITHKLINE-A0558866A

PATIENT
  Age: 17 Year
  Sex: Male

DRUGS (1)
  1. LAMOTRIGINE [Suspect]

REACTIONS (1)
  - ADVERSE EVENT [None]
